FAERS Safety Report 11933032 (Version 1)
Quarter: 2016Q1

REPORT INFORMATION
  Report Type: Report from Study
  Country: IN (occurrence: IN)
  Receive Date: 20160121
  Receipt Date: 20160121
  Transmission Date: 20160526
  Serious: Yes (Other)
  Sender: FDA-Public Use
  Company Number: IN-ROCHE-1696374

PATIENT
  Sex: Female

DRUGS (16)
  1. DEFLAZACORT [Concomitant]
     Active Substance: DEFLAZACORT
     Route: 048
     Dates: start: 20150428
  2. CREMAFFIN [Concomitant]
     Route: 048
     Dates: start: 20150428
  3. URIMAX (TAMSULOSIN HYDROCHLORIDE) [Concomitant]
     Route: 048
     Dates: start: 20150428
  4. CELLCEPT [Suspect]
     Active Substance: MYCOPHENOLATE MOFETIL\MYCOPHENOLATE MOFETIL HYDROCHLORIDE
     Indication: RENAL TRANSPLANT
     Dosage: 1000MG  IN MORNING, 500MG IN EVENING
     Route: 048
     Dates: start: 20150428
  5. SHELCAL [Concomitant]
     Route: 048
     Dates: start: 20150428
  6. PANGRAF [Concomitant]
     Active Substance: TACROLIMUS
     Dosage: 1.5MG/2MG
     Route: 048
     Dates: start: 20150428
  7. METOPROLOL. [Concomitant]
     Active Substance: METOPROLOL
     Dosage: 2 TABLETS OF 12.5 MG IN MORNING;1TABLET IN EVENING
     Route: 048
     Dates: start: 20150428
  8. CALCIROL (INDIA) [Concomitant]
     Route: 065
     Dates: start: 20150428
  9. CELLCEPT [Suspect]
     Active Substance: MYCOPHENOLATE MOFETIL\MYCOPHENOLATE MOFETIL HYDROCHLORIDE
     Dosage: 250MG MORNING AND?500/750MG IN EVENING
     Route: 048
  10. VALGANCICLOVIR [Concomitant]
     Active Substance: VALGANCICLOVIR
     Route: 048
     Dates: start: 20150428
  11. IVABRAD [Concomitant]
     Route: 048
     Dates: start: 20150428
  12. OSTEOFOS (INDIA) [Concomitant]
     Route: 048
     Dates: start: 20150428
  13. CILNIDIPINE [Concomitant]
     Active Substance: CILNIDIPINE
     Route: 048
     Dates: start: 20150428
  14. SULFAMETHOXAZOLE/TRIMETHOPRIM [Concomitant]
     Active Substance: SULFAMETHOXAZOLE\TRIMETHOPRIM
     Route: 048
     Dates: start: 20150428
  15. TRINORM [Concomitant]
     Route: 048
     Dates: start: 20150428
  16. RANTAC [Concomitant]
     Active Substance: RANITIDINE HYDROCHLORIDE
     Route: 048
     Dates: start: 20150428

REACTIONS (1)
  - Red blood cell count decreased [Recovered/Resolved]
